FAERS Safety Report 9122736 (Version 4)
Quarter: 2013Q3

REPORT INFORMATION
  Report Type: Spontaneous
  Country: US (occurrence: US)
  Receive Date: 20130115
  Receipt Date: 20130919
  Transmission Date: 20140515
  Serious: Yes (Hospitalization, Other)
  Sender: FDA-Public Use
  Company Number: US-009507513-1301USA005311

PATIENT
  Sex: Female

DRUGS (7)
  1. FOSAMAX [Suspect]
     Indication: OSTEOPENIA
     Dosage: 70 MG, QW
     Route: 048
     Dates: start: 200012, end: 200802
  2. ALENDRONATE SODIUM [Suspect]
     Indication: OSTEOPENIA
     Dosage: 70 MG, QW
     Route: 048
     Dates: start: 200802, end: 200907
  3. VITAMINS (UNSPECIFIED) [Concomitant]
     Dosage: UNK
     Dates: start: 1973
  4. ASCORBIC ACID [Concomitant]
     Dosage: UNK
     Dates: start: 1973
  5. CALCIUM (UNSPECIFIED) [Concomitant]
     Dosage: UNK
     Dates: start: 1995
  6. FOLIC ACID [Concomitant]
     Dosage: UNK
     Dates: start: 2000
  7. SYNTHROID [Concomitant]
     Indication: HYPOTHYROIDISM
     Dosage: 0.075 MG, QD
     Dates: start: 200001

REACTIONS (17)
  - Hysterectomy [Unknown]
  - Colporrhaphy [Unknown]
  - Bladder neck suspension [Unknown]
  - Urosepsis [Unknown]
  - Femur fracture [Unknown]
  - Impaired healing [Unknown]
  - Osteoporosis [Unknown]
  - Bunion operation [Unknown]
  - Urinary tract infection [Unknown]
  - Osteoarthritis [Unknown]
  - Osteoarthritis [Unknown]
  - Vascular calcification [Unknown]
  - Spinal osteoarthritis [Unknown]
  - Fractured sacrum [Unknown]
  - Back pain [Unknown]
  - Arthralgia [Unknown]
  - Musculoskeletal pain [Unknown]
